FAERS Safety Report 8204715-9 (Version None)
Quarter: 2012Q1

REPORT INFORMATION
  Report Type: 
  Country: None (occurrence: None)
  Receive Date: 20120313
  Receipt Date: 20120308
  Transmission Date: 20120608
  Serious: Yes (Death)
  Sender: FDA-Public Use
  Company Number: US-CELGENEUS-163-21880-12011558

PATIENT
  Sex: Male

DRUGS (9)
  1. AMLODIPINE [Concomitant]
     Route: 065
  2. MULTI-VITAMINS [Concomitant]
     Route: 065
  3. SIMVASTATIN [Concomitant]
     Dosage: 5 MILLIGRAM
     Route: 065
  4. REVLIMID [Suspect]
     Indication: MULTIPLE MYELOMA
     Dosage: 25 MILLIGRAM
     Route: 048
     Dates: start: 20101201
  5. FEXOFENADINE [Concomitant]
     Dosage: 30 MILLIGRAM
     Route: 065
  6. TRICOR [Concomitant]
     Dosage: 145 MILLIGRAM
     Route: 065
  7. CALCIUM CARBONATE [Concomitant]
     Route: 065
  8. PRAVASTATIN [Concomitant]
     Dosage: 40 MILLIGRAM
     Route: 065
  9. ASPIRIN [Concomitant]
     Route: 065

REACTIONS (1)
  - HIP FRACTURE [None]
